FAERS Safety Report 7407533-4 (Version None)
Quarter: 2011Q2

REPORT INFORMATION
  Report Type: 
  Country: None (occurrence: None)
  Receive Date: 20110412
  Receipt Date: 20110401
  Transmission Date: 20111010
  Serious: Yes (Hospitalization, Other)
  Sender: FDA-Public Use
  Company Number: JP-BIOGENIDEC-2009BI041500

PATIENT
  Age: 33 Year
  Sex: Female

DRUGS (5)
  1. LOXOPROFEN SODIUM [Concomitant]
     Dates: start: 20081227
  2. AVONEX [Suspect]
     Route: 030
     Dates: start: 20090103, end: 20090109
  3. RIVOTRIL [Concomitant]
     Dates: start: 20090103
  4. AVONEX [Suspect]
     Indication: RELAPSING-REMITTING MULTIPLE SCLEROSIS
     Route: 030
     Dates: start: 20081227, end: 20090102
  5. AVONEX [Suspect]
     Route: 030
     Dates: start: 20090110, end: 20100109

REACTIONS (2)
  - MYASTHENIA GRAVIS [None]
  - THYMOMA [None]
